FAERS Safety Report 19364669 (Version 1)
Quarter: 2021Q2

REPORT INFORMATION
  Report Type: Spontaneous
  Country: US (occurrence: US)
  Receive Date: 20210603
  Receipt Date: 20210603
  Transmission Date: 20210717
  Serious: Yes (Disabling)
  Sender: FDA-Public Use
  Company Number: None

PATIENT
  Age: 41 Year
  Sex: Male
  Weight: 81.9 kg

DRUGS (7)
  1. VITAMIN C [Concomitant]
     Active Substance: ASCORBIC ACID
  2. DIMETHYL FUMARATE DELAY RELEASE CAPSULES [Suspect]
     Active Substance: DIMETHYL FUMARATE
     Indication: MULTIPLE SCLEROSIS
     Dosage: ?          QUANTITY:1 CAPSULE(S);?
     Route: 048
     Dates: start: 20210525, end: 20210603
  3. ALLOPURINOL. [Concomitant]
     Active Substance: ALLOPURINOL
  4. MULTIVITAMIN [Concomitant]
     Active Substance: VITAMINS
  5. FISH OIL [Concomitant]
     Active Substance: FISH OIL
  6. IBUPROFEN. [Concomitant]
     Active Substance: IBUPROFEN
  7. FIBER [Concomitant]
     Active Substance: PSYLLIUM HUSK

REACTIONS (5)
  - Product substitution issue [None]
  - Diarrhoea [None]
  - Product formulation issue [None]
  - Abdominal pain [None]
  - Suspected product contamination [None]

NARRATIVE: CASE EVENT DATE: 20210525
